FAERS Safety Report 13641452 (Version 1)
Quarter: 2017Q2

REPORT INFORMATION
  Report Type: Spontaneous
  Country: US (occurrence: US)
  Receive Date: 20170610
  Receipt Date: 20170610
  Transmission Date: 20170830
  Serious: Yes (Hospitalization)
  Sender: FDA-Public Use
  Company Number: None

PATIENT
  Age: 72 Year
  Sex: Male
  Weight: 88.2 kg

DRUGS (3)
  1. ESZOPICLONE 3 MG [Suspect]
     Active Substance: ESZOPICLONE
     Indication: SLEEP DISORDER
     Dosage: ?          QUANTITY:1 TABLET(S);?
     Route: 048
     Dates: start: 20140101, end: 20170505
  2. AMLOD-VALSA HCTZ [Concomitant]
  3. METOPROLOL SCCC ER [Concomitant]

REACTIONS (6)
  - Chromaturia [None]
  - Ileus paralytic [None]
  - Tremor [None]
  - Hypertension [None]
  - Constipation [None]
  - Pyrexia [None]

NARRATIVE: CASE EVENT DATE: 20170502
